FAERS Safety Report 12726837 (Version 1)
Quarter: 2016Q3

REPORT INFORMATION
  Report Type: Spontaneous
  Country: FR (occurrence: FR)
  Receive Date: 20160908
  Receipt Date: 20160908
  Transmission Date: 20161109
  Serious: Yes (Hospitalization)
  Sender: FDA-Public Use
  Company Number: FR-009507513-1609FRA002757

PATIENT
  Sex: Female

DRUGS (20)
  1. MABTHERA [Suspect]
     Active Substance: RITUXIMAB
     Indication: B-CELL LYMPHOMA STAGE IV
     Dosage: 600 MG SIGNAL DOSE
     Route: 042
     Dates: start: 20160719, end: 20160719
  2. LASILIX [Concomitant]
     Active Substance: FUROSEMIDE
  3. LEVOTHYROX [Concomitant]
     Active Substance: LEVOTHYROXINE
  4. OXYCODONE [Suspect]
     Active Substance: OXYCODONE
     Indication: ANALGESIC THERAPY
     Dosage: STRENGTH: PROLONGED RELEASED FILM COATED TABLET, 2 DF, QD
     Route: 048
     Dates: start: 20160721, end: 20160722
  5. METFORMIN [Concomitant]
     Active Substance: METFORMIN HYDROCHLORIDE
  6. DEXAMETHASONE. [Concomitant]
     Active Substance: DEXAMETHASONE
  7. LEVEMIR [Concomitant]
     Active Substance: INSULIN DETEMIR
  8. TARDYFERON [Concomitant]
     Active Substance: FERROUS SULFATE
  9. IFOSFAMIDE. [Suspect]
     Active Substance: IFOSFAMIDE
     Indication: B-CELL LYMPHOMA STAGE IV
     Dosage: 6 G SINGLE DOSE
     Route: 042
     Dates: start: 20160721, end: 20160721
  10. CARBOPLATIN. [Suspect]
     Active Substance: CARBOPLATIN
     Indication: B-CELL LYMPHOMA STAGE IV
     Dosage: 300 MG SINGLE DOSE
     Route: 042
     Dates: start: 20160720, end: 20160720
  11. PRAVASTATIN SODIUM. [Concomitant]
     Active Substance: PRAVASTATIN SODIUM
  12. ZELITREX [Concomitant]
     Active Substance: VALACYCLOVIR HYDROCHLORIDE
  13. EMEND [Suspect]
     Active Substance: APREPITANT
     Indication: PROPHYLAXIS OF NAUSEA AND VOMITING
     Dosage: UNK
     Route: 048
     Dates: start: 20160719, end: 20160721
  14. DIAMICRON [Concomitant]
     Active Substance: GLICLAZIDE
  15. RAMIPRIL. [Concomitant]
     Active Substance: RAMIPRIL
  16. GRANOCYTE [Concomitant]
     Active Substance: LENOGRASTIM
  17. KARDEGIC [Concomitant]
     Active Substance: ASPIRIN LYSINE
  18. OROZAMUDOL [Concomitant]
     Active Substance: TRAMADOL
  19. SOTALOL HYDROCHLORIDE. [Concomitant]
     Active Substance: SOTALOL HYDROCHLORIDE
  20. PRIMPERAN [Concomitant]
     Active Substance: METOCLOPRAMIDE HYDROCHLORIDE

REACTIONS (1)
  - Encephalopathy [Recovered/Resolved]
